FAERS Safety Report 20111459 (Version 1)
Quarter: 2021Q4

REPORT INFORMATION
  Report Type: Spontaneous
  Country: US (occurrence: US)
  Receive Date: 20211125
  Receipt Date: 20211125
  Transmission Date: 20220304
  Serious: No
  Sender: FDA-Public Use
  Company Number: MIQ-04162021-1519

PATIENT

DRUGS (7)
  1. IVERMECTIN [Suspect]
     Active Substance: IVERMECTIN
     Indication: COVID-19 prophylaxis
     Dosage: 4 PILLS, WEEKLY
     Route: 048
     Dates: start: 202101, end: 2021
  2. IVERMECTIN [Suspect]
     Active Substance: IVERMECTIN
     Dosage: 3 PILLS, WEEKLY
     Route: 048
     Dates: start: 2021
  3. MELATONIN [Concomitant]
     Active Substance: MELATONIN
     Indication: COVID-19 prophylaxis
     Dosage: 6 MG
  4. VITAMIN D NOS [Concomitant]
     Active Substance: VITAMIN D NOS
     Indication: COVID-19 prophylaxis
     Dosage: 1000-3000 UNITS
  5. VITAMIN C                          /00008001/ [Concomitant]
     Indication: COVID-19 prophylaxis
     Dosage: 1000 MG
  6. QUERCETIN [Concomitant]
     Active Substance: QUERCETIN
     Indication: COVID-19 prophylaxis
     Dosage: 250 MG
  7. ZINC [Concomitant]
     Active Substance: ZINC
     Indication: COVID-19 prophylaxis
     Dosage: 50 MG

REACTIONS (3)
  - Dizziness [Recovered/Resolved]
  - Therapeutic response unexpected [Unknown]
  - Product use in unapproved indication [Unknown]

NARRATIVE: CASE EVENT DATE: 20210101
